FAERS Safety Report 8978266 (Version 1)
Quarter: 2012Q4

REPORT INFORMATION
  Report Type: 
  Country: GB (occurrence: GB)
  Receive Date: 20121220
  Receipt Date: 20121220
  Transmission Date: 20130627
  Serious: Yes (Hospitalization)
  Sender: FDA-Public Use
  Company Number: GB-WATSON-2012-22270

PATIENT
  Age: 55 Year
  Sex: Female
  Weight: 36 kg

DRUGS (2)
  1. GEMCITABINE [Suspect]
     Indication: PANCREATIC CARCINOMA METASTATIC
     Dosage: 1000mg/m2 d1,d8, d15 Q28 days.
     Route: 042
     Dates: start: 20121025
  2. METOCLOPRAMIDE [Concomitant]
     Indication: PRODUCT USED FOR UNKNOWN INDICATION
     Dosage: UNK,
     Route: 065

REACTIONS (3)
  - Confusional state [Recovering/Resolving]
  - Cerebral ischaemia [Recovering/Resolving]
  - IIIrd nerve paresis [Recovering/Resolving]
